FAERS Safety Report 6125879-7 (Version None)
Quarter: 2009Q1

REPORT INFORMATION
  Report Type: 
  Country: None (occurrence: None)
  Receive Date: 20090318
  Receipt Date: 20090303
  Transmission Date: 20090719
  Serious: Yes (Death)
  Sender: FDA-Public Use
  Company Number: 2009S1003660

PATIENT
  Age: 79 Year
  Sex: Male

DRUGS (6)
  1. AMIODARONE (AMIODARONE) [Suspect]
     Indication: DRUG USE FOR UNKNOWN INDICATION
     Dosage: 200 MG; DAILY
  2. ASPIRIN (CON.) [Concomitant]
  3. ATORVASTATIN (CON.) [Concomitant]
  4. FUROSEMIDE (CON.) [Concomitant]
  5. RANITIDINE (CON.) [Concomitant]
  6. THYROXINE (CON.) [Concomitant]

REACTIONS (13)
  - ASCITES [None]
  - CARDIAC FAILURE [None]
  - GYNAECOMASTIA [None]
  - HAEMATEMESIS [None]
  - HEPATIC CIRRHOSIS [None]
  - HEPATIC ENCEPHALOPATHY [None]
  - HEPATIC FIBROSIS [None]
  - LETHARGY [None]
  - LIVER DISORDER [None]
  - PALMAR ERYTHEMA [None]
  - REFLUX OESOPHAGITIS [None]
  - RENAL FAILURE [None]
  - SPIDER NAEVUS [None]
